FAERS Safety Report 25333476 (Version 1)
Quarter: 2025Q2

REPORT INFORMATION
  Report Type: Report from Study
  Country: CA (occurrence: CA)
  Receive Date: 20250520
  Receipt Date: 20250520
  Transmission Date: 20250717
  Serious: Yes (Hospitalization)
  Sender: ABBVIE
  Company Number: CA-ABBVIE-6284343

PATIENT
  Sex: Male

DRUGS (1)
  1. RINVOQ [Suspect]
     Active Substance: UPADACITINIB
     Indication: Crohn^s disease
     Dosage: FORM STRENGTH: 30 MG
     Route: 048

REACTIONS (6)
  - Tremor [Unknown]
  - Pyrexia [Unknown]
  - Decreased appetite [Unknown]
  - Chills [Unknown]
  - Nasopharyngitis [Unknown]
  - Chromaturia [Unknown]
